FAERS Safety Report 5799841-8 (Version None)
Quarter: 2008Q3

REPORT INFORMATION
  Report Type: 
  Country: None (occurrence: None)
  Receive Date: 20080702
  Receipt Date: 20080702
  Transmission Date: 20090109
  Serious: Yes (Other)
  Sender: FDA-Public Use
  Company Number: None

PATIENT
  Age: 63 Year
  Sex: Male

DRUGS (1)
  1. DIGITEK ACTAVIS [Suspect]
     Dosage: 0.125MG DAILY
     Dates: start: 20070201, end: 20080501

REACTIONS (4)
  - HALO VISION [None]
  - OVERDOSE [None]
  - PHARMACEUTICAL PRODUCT COMPLAINT [None]
  - VISUAL IMPAIRMENT [None]
